FAERS Safety Report 23206695 (Version 1)
Quarter: 2023Q4

REPORT INFORMATION
  Report Type: Spontaneous
  Country: CA (occurrence: CA)
  Receive Date: 20231120
  Receipt Date: 20231120
  Transmission Date: 20240110
  Serious: Yes (Other)
  Sender: FDA-Public Use
  Company Number: CA-TEVA-2023-CA-2947772

PATIENT
  Sex: Male
  Weight: 16 kg

DRUGS (2)
  1. AMOXICILLIN [Suspect]
     Active Substance: AMOXICILLIN
     Indication: Product used for unknown indication
     Route: 065
  2. CECLOR [Suspect]
     Active Substance: CEFACLOR
     Indication: Otitis media
     Route: 048

REACTIONS (1)
  - Serum sickness [Recovered/Resolved]
